FAERS Safety Report 17746932 (Version 1)
Quarter: 2020Q2

REPORT INFORMATION
  Report Type: Spontaneous
  Country: US (occurrence: US)
  Receive Date: 20200505
  Receipt Date: 20200505
  Transmission Date: 20200714
  Serious: Yes (Other)
  Sender: FDA-Public Use
  Company Number: US-PROCTER_AND_GAMBLE-GS20051823

PATIENT

DRUGS (1)
  1. VPUREZZZSSLEEPAIDADULTDE-STRESS+SLEEPMELATONIN+GUMMY [Suspect]
     Active Substance: MELATONIN
     Route: 048

REACTIONS (1)
  - Seizure [Recovered/Resolved]
